FAERS Safety Report 15100637 (Version 2)
Quarter: 2019Q2

REPORT INFORMATION
  Report Type: Spontaneous
  Country: US (occurrence: US)
  Receive Date: 20180703
  Receipt Date: 20190412
  Transmission Date: 20190711
  Serious: Yes (Hospitalization, Other)
  Sender: FDA-Public Use
  Company Number: US-ASTRAZENECA-2018SE83541

PATIENT
  Age: 669 Month
  Sex: Male
  Weight: 87.5 kg

DRUGS (9)
  1. METOPROLOL. [Concomitant]
     Active Substance: METOPROLOL
  2. POTASSIUM CHLORIDE. [Concomitant]
     Active Substance: POTASSIUM CHLORIDE
  3. NEXIUM 24HR [Suspect]
     Active Substance: ESOMEPRAZOLE MAGNESIUM
     Route: 048
     Dates: start: 2007, end: 2017
  4. GABAPENTIN. [Concomitant]
     Active Substance: GABAPENTIN
  5. NEXIUM [Suspect]
     Active Substance: ESOMEPRAZOLE MAGNESIUM
     Route: 048
     Dates: start: 2007, end: 2017
  6. SIMVASTATIN. [Concomitant]
     Active Substance: SIMVASTATIN
  7. FUROSEMIDE. [Concomitant]
     Active Substance: FUROSEMIDE
  8. WARFARIN SODIUM. [Concomitant]
     Active Substance: WARFARIN SODIUM
  9. CALCITRIOL. [Concomitant]
     Active Substance: CALCITRIOL

REACTIONS (6)
  - Proteinuria [Recovered/Resolved]
  - Abdominal pain upper [Recovered/Resolved]
  - Renal injury [Recovered/Resolved]
  - Chronic kidney disease [Unknown]
  - Acute kidney injury [Recovered/Resolved]
  - Renal failure [Recovered/Resolved]

NARRATIVE: CASE EVENT DATE: 201612
